FAERS Safety Report 7822124-9 (Version None)
Quarter: 2011Q4

REPORT INFORMATION
  Report Type: 
  Country: None (occurrence: None)
  Receive Date: 20111018
  Receipt Date: 20111011
  Transmission Date: 20120403
  Serious: Yes (Hospitalization, Other)
  Sender: FDA-Public Use
  Company Number: US-JNJFOC-20110505011

PATIENT
  Sex: Female

DRUGS (1)
  1. LEVAQUIN [Suspect]
     Indication: SINUSITIS
     Route: 048
     Dates: start: 20060201

REACTIONS (5)
  - ROTATOR CUFF SYNDROME [None]
  - TENDON DISORDER [None]
  - DEPRESSION [None]
  - TENDON RUPTURE [None]
  - EPICONDYLITIS [None]
